FAERS Safety Report 5290189-7 (Version None)
Quarter: 2007Q2

REPORT INFORMATION
  Report Type: 
  Country: None (occurrence: None)
  Receive Date: 20070402
  Receipt Date: 20070319
  Transmission Date: 20071010
  Serious: Yes (Hospitalization)
  Sender: FDA-Public Use
  Company Number: FABR-11918

PATIENT
  Age: 54 Year
  Sex: Male
  Weight: 73 kg

DRUGS (1)
  1. FABRAZYME [Suspect]
     Indication: FABRY'S DISEASE
     Dosage: 70 MG Q2WKS IV
     Route: 042
     Dates: start: 20061218

REACTIONS (8)
  - ANORECTAL DISORDER [None]
  - CARDIAC INFECTION [None]
  - CHEST PAIN [None]
  - DIALYSIS [None]
  - FLANK PAIN [None]
  - GASTRIC DISORDER [None]
  - MEMORY IMPAIRMENT [None]
  - SEPSIS [None]
